FAERS Safety Report 11378961 (Version 1)
Quarter: 2015Q3

REPORT INFORMATION
  Report Type: Spontaneous
  Country: GB (occurrence: None)
  Receive Date: 20150812
  Receipt Date: 20150812
  Transmission Date: 20151125
  Serious: Yes (Other)
  Sender: FDA-Public Use
  Company Number: 2015RR-101286

PATIENT
  Age: 84 Year
  Sex: Male

DRUGS (8)
  1. SERTRALINE [Suspect]
     Active Substance: SERTRALINE HYDROCHLORIDE
     Indication: PANIC DISORDER
     Route: 048
     Dates: start: 20150518
  2. LACTULOSE. [Concomitant]
     Active Substance: LACTULOSE
  3. CHLORPROMAZINE. [Concomitant]
     Active Substance: CHLORPROMAZINE
  4. SERTRALINE [Suspect]
     Active Substance: SERTRALINE HYDROCHLORIDE
     Indication: PANIC DISORDER
     Route: 048
  5. CO-CODAMOL (CODEINE PHOSPHATE, PARACETAMOL) [Concomitant]
  6. HYOSCINE [Concomitant]
     Active Substance: SCOPOLAMINE
  7. SERTRALINE [Suspect]
     Active Substance: SERTRALINE HYDROCHLORIDE
     Indication: PANIC DISORDER
     Route: 048
     Dates: end: 20150517
  8. SOLIFENACIN [Concomitant]
     Active Substance: SOLIFENACIN

REACTIONS (5)
  - Anxiety [None]
  - Serotonin syndrome [None]
  - Panic reaction [None]
  - Confusional state [None]
  - Muscle twitching [None]
